FAERS Safety Report 12891987 (Version 2)
Quarter: 2016Q4

REPORT INFORMATION
  Report Type: Spontaneous
  Country: FI (occurrence: FI)
  Receive Date: 20161028
  Receipt Date: 20161104
  Transmission Date: 20170207
  Serious: Yes (Hospitalization)
  Sender: FDA-Public Use
  Company Number: FI-ROCHE-1847042

PATIENT
  Age: 79 Year
  Sex: Female

DRUGS (14)
  1. MABTHERA [Suspect]
     Active Substance: RITUXIMAB
     Indication: DIFFUSE LARGE B-CELL LYMPHOMA
     Dosage: FIVE CYCLES?TOT. 7 DOSE OF SC ,EIGHTH DOSE ADMINISTERED ON 01/AUG/2016
     Route: 058
     Dates: start: 201603, end: 20160622
  2. CYCLOPHOSPHAMIDE. [Concomitant]
     Active Substance: CYCLOPHOSPHAMIDE
     Indication: DIFFUSE LARGE B-CELL LYMPHOMA
     Dosage: TOTALLY 6 CYCLES
     Route: 065
     Dates: start: 20160308, end: 20160622
  3. VINCRISTINE [Concomitant]
     Active Substance: VINCRISTINE
     Indication: DIFFUSE LARGE B-CELL LYMPHOMA
     Dosage: TOTALLY 6 CYCLES
     Route: 065
     Dates: start: 20160308, end: 20160622
  4. PREDNISOLONE. [Concomitant]
     Active Substance: PREDNISOLONE
     Indication: DIFFUSE LARGE B-CELL LYMPHOMA
     Dosage: TOTALLY 6 CYCLES
     Route: 065
     Dates: start: 20160308, end: 20160622
  5. SIMVASTATIN. [Concomitant]
     Active Substance: SIMVASTATIN
     Indication: HYPERCHOLESTEROLAEMIA
     Dosage: PER DAY
     Route: 048
  6. AMLODIPIN [Concomitant]
     Active Substance: AMLODIPINE BESYLATE
     Indication: HYPERTENSION
     Dosage: PER DAY
     Route: 048
  7. MABTHERA [Suspect]
     Active Substance: RITUXIMAB
     Dosage: TOTALLY TWO CYCLES, LATEST ON 01/AUG/2016
     Route: 058
     Dates: start: 2016
  8. ARA-C [Concomitant]
     Active Substance: CYTARABINE
     Indication: LYMPHOMA
     Dosage: 2 CYCLES, LATEST ON 01/AUG/2016
     Route: 042
     Dates: start: 2016
  9. CETIRIZIN [Concomitant]
     Active Substance: CETIRIZINE HYDROCHLORIDE
     Indication: PREMEDICATION
     Route: 048
     Dates: start: 20160801
  10. LONQUEX [Concomitant]
     Active Substance: LIPEGFILGRASTIM
     Route: 058
     Dates: start: 20160804
  11. PARA-TABS [Concomitant]
     Active Substance: ACETAMINOPHEN
     Indication: PREMEDICATION
     Route: 048
     Dates: start: 20160801
  12. DOXORUBICIN [Concomitant]
     Active Substance: DOXORUBICIN
     Indication: DIFFUSE LARGE B-CELL LYMPHOMA
     Dosage: TOTALLY 6 CYCLES
     Route: 065
     Dates: start: 20160308, end: 20160622
  13. PREDNISOLON [Concomitant]
     Active Substance: PREDNISOLONE
     Indication: PREMEDICATION
     Route: 048
     Dates: start: 20160801
  14. CARDACE (FINLAND) [Concomitant]
     Indication: HYPERTENSION
     Dosage: PER DAY
     Route: 048

REACTIONS (2)
  - Injection site inflammation [Recovered/Resolved]
  - Ill-defined disorder [Recovered/Resolved]

NARRATIVE: CASE EVENT DATE: 20160804
